FAERS Safety Report 8847996 (Version 5)
Quarter: 2013Q3

REPORT INFORMATION
  Report Type: Report from Study
  Country: JP (occurrence: JP)
  Receive Date: 20121018
  Receipt Date: 20130726
  Transmission Date: 20140515
  Serious: Yes (Death, Hospitalization, Other)
  Sender: FDA-Public Use
  Company Number: JP-OTSUKA-JP-2012-16564

PATIENT
  Age: 81 Year
  Sex: Male

DRUGS (23)
  1. SAMSCA [Suspect]
     Indication: FLUID RETENTION
     Dosage: 3.75 MG MILLIGRAM(S), QAM
     Route: 048
     Dates: start: 20120827, end: 20120908
  2. MICARDIS [Concomitant]
     Dosage: 20 MG MILLIGRAM(S), DAILY DOSE
     Route: 048
     Dates: end: 20120806
  3. ALDACTONE A [Concomitant]
     Indication: CARDIAC FAILURE
     Dosage: 25 MG MILLIGRAM(S), DAILY DOSE
     Route: 048
     Dates: end: 20120806
  4. DIGOSIN [Concomitant]
     Dosage: 0.125 MG MILLIGRAM(S), DAILY DOSE
     Route: 042
     Dates: end: 20120827
  5. LASIX [Concomitant]
     Indication: CARDIAC FAILURE
     Dosage: 40 MG MILLIGRAM(S), DAILY DOSE
     Route: 048
     Dates: end: 20120906
  6. METHYCOBAL [Concomitant]
     Dosage: 1500 MCG, DAILY DOSE
     Route: 048
     Dates: end: 20120911
  7. HEPARIN NA [Concomitant]
     Dosage: 10 KIU IU(1000S), DAILY DOSE
     Route: 042
     Dates: end: 20120828
  8. HEPARIN NA [Concomitant]
     Dosage: 10 KIU IU(1000S), DAILY DOSE
     Route: 042
     Dates: start: 20120830, end: 20120910
  9. SELBEX [Concomitant]
     Indication: PROPHYLAXIS
     Dosage: 150 MG MILLIGRAM(S), DAILY DOSE
     Route: 048
     Dates: end: 20120911
  10. MUCODYNE [Concomitant]
     Dosage: 750 MG MILLIGRAM(S), DAILY DOSE
     Route: 048
     Dates: end: 20120911
  11. ALOSITOL [Concomitant]
     Dosage: 100 MG MILLIGRAM(S), DAILY DOSE
     Route: 048
     Dates: end: 20120911
  12. LIPITOR [Concomitant]
     Dosage: 10 MG MILLIGRAM(S), DAILY DOSE
     Route: 048
     Dates: end: 20120911
  13. CLARITH [Concomitant]
     Dosage: 200 MG MILLIGRAM(S), DAILY DOSE
     Route: 048
     Dates: end: 20120911
  14. PHELLOBERIN [Concomitant]
     Dosage: 6 DF DOSAGE FORM, DAILY DOSE
     Route: 048
     Dates: end: 20120911
  15. SOLITA-T NO.4 [Concomitant]
     Indication: PROPHYLAXIS
     Dosage: 2400 ML MILLILITRE(S), DAILY DOSE
     Route: 042
     Dates: start: 20120829, end: 20120829
  16. SOLITA-T NO.4 [Concomitant]
     Dosage: 480 ML MILLILITRE(S), DAILY DOSE
     Route: 042
     Dates: start: 20120901, end: 20120901
  17. NORADRENALINE [Concomitant]
     Indication: CARDIAC FAILURE
     Dosage: 4 MG MILLIGRAM(S), DAILY DOSE
     Route: 042
     Dates: start: 20120829, end: 20120829
  18. NORADRENALINE [Concomitant]
     Dosage: 6 MG MILLIGRAM(S), DAILY DOSE
     Route: 042
     Dates: start: 20120830, end: 20120913
  19. WARFARIN [Concomitant]
     Dosage: 0.5 MG MILLIGRAM(S), DAILY DOSE
     Route: 048
     Dates: start: 20120829
  20. NESINA [Concomitant]
     Dosage: 6.25 MG MILLIGRAM(S), DAILY DOSE
     Route: 048
     Dates: start: 20120830
  21. BASEN [Concomitant]
     Dosage: 0.9 MG MILLIGRAM(S), DAILY DOSE
     Route: 048
     Dates: start: 20120901, end: 20120907
  22. ARTIST [Concomitant]
     Indication: CARDIAC FAILURE
     Dosage: 2.5 MG MILLIGRAM(S), DAILY DOSE
     Route: 048
     Dates: start: 20120903, end: 20120906
  23. BICARBON [Concomitant]
     Indication: CARDIAC FAILURE
     Dosage: 480 ML MILLILITRE(S), DAILY DOSE
     Route: 042
     Dates: start: 20120908, end: 20120909

REACTIONS (4)
  - Low cardiac output syndrome [Fatal]
  - Multi-organ failure [Fatal]
  - Renal failure acute [Not Recovered/Not Resolved]
  - Hepatic function abnormal [Not Recovered/Not Resolved]
